FAERS Safety Report 16660249 (Version 3)
Quarter: 2019Q4

REPORT INFORMATION
  Report Type: Spontaneous
  Country: US (occurrence: US)
  Receive Date: 20190802
  Receipt Date: 20191023
  Transmission Date: 20200122
  Serious: Yes (Other)
  Sender: FDA-Public Use
  Company Number: US-BRISTOL-MYERS SQUIBB COMPANY-BMS-2019-076239

PATIENT
  Age: 56 Year
  Sex: Female
  Weight: 95.25 kg

DRUGS (1)
  1. ORENCIA [Suspect]
     Active Substance: ABATACEPT
     Indication: RHEUMATOID ARTHRITIS
     Dosage: 125 MILLIGRAM, INJECTION INTO ABDOMEN
     Route: 050

REACTIONS (3)
  - Device issue [Unknown]
  - Injection site haemorrhage [Unknown]
  - Device malfunction [Unknown]

NARRATIVE: CASE EVENT DATE: 20190728
